FAERS Safety Report 23067848 (Version 3)
Quarter: 2023Q4

REPORT INFORMATION
  Report Type: Report from Study
  Country: MX (occurrence: MX)
  Receive Date: 20231016
  Receipt Date: 20231121
  Transmission Date: 20240110
  Serious: Yes (Hospitalization, Other)
  Sender: FDA-Public Use
  Company Number: MX-002147023-NVSC2023MX221022

PATIENT
  Sex: Female
  Weight: 76 kg

DRUGS (4)
  1. COSENTYX [Suspect]
     Active Substance: SECUKINUMAB
     Indication: Osteoarthritis
     Dosage: 300 MG (2 DOSAGE FORM OF 150 MG), QMO (150 MG)
     Route: 058
     Dates: start: 2022
  2. COSENTYX [Suspect]
     Active Substance: SECUKINUMAB
     Indication: Psoriatic arthropathy
  3. COSENTYX [Suspect]
     Active Substance: SECUKINUMAB
     Indication: Osteoporosis
  4. DINAMEL [Concomitant]
     Indication: Diabetes mellitus
     Dosage: 2 DOSAGE FORM, DAILY (20 YEARS AGO)
     Route: 048

REACTIONS (11)
  - Fall [Recovering/Resolving]
  - Fractured sacrum [Recovering/Resolving]
  - Lumbar vertebral fracture [Unknown]
  - Pain [Recovering/Resolving]
  - Arthralgia [Unknown]
  - Finger deformity [Unknown]
  - Red blood cell sedimentation rate increased [Unknown]
  - Blood urea increased [Unknown]
  - Blood cholesterol increased [Unknown]
  - Blood lactate dehydrogenase increased [Unknown]
  - Off label use [Unknown]

NARRATIVE: CASE EVENT DATE: 20220101
